FAERS Safety Report 5649460-9 (Version None)
Quarter: 2008Q1

REPORT INFORMATION
  Report Type: 
  Country: None (occurrence: None)
  Receive Date: 20080303
  Receipt Date: 20080303
  Transmission Date: 20080703
  Serious: No
  Sender: FDA-Public Use
  Company Number: None

PATIENT
  Age: 26 Year
  Sex: Female
  Weight: 62.5964 kg

DRUGS (1)
  1. REQUIP [Suspect]
     Indication: RESTLESS LEGS SYNDROME
     Dosage: 1MG   1X DAILY PO
     Route: 048
     Dates: start: 20080120, end: 20080204

REACTIONS (2)
  - HEART RATE INCREASED [None]
  - INSOMNIA [None]
